FAERS Safety Report 7546427-0 (Version None)
Quarter: 2011Q2

REPORT INFORMATION
  Report Type: 
  Country: None (occurrence: None)
  Receive Date: 20110614
  Receipt Date: 20110608
  Transmission Date: 20111010
  Serious: Yes (Hospitalization)
  Sender: FDA-Public Use
  Company Number: JP-PFIZER INC-2011064993

PATIENT
  Age: 78 Year
  Sex: Male
  Weight: 68 kg

DRUGS (3)
  1. TEMSIROLIMUS [Suspect]
     Indication: METASTATIC RENAL CELL CARCINOMA
     Dosage: 25 MG, WEEKLY
     Route: 041
     Dates: start: 20110304, end: 20110323
  2. BETAMETHASONE [Concomitant]
     Indication: BRAIN OEDEMA
     Dosage: 2 MG, 1X/DAY
     Route: 048
  3. DIPHENHYDRAMINE HYDROCHLORIDE [Concomitant]
     Indication: PROPHYLAXIS
     Dosage: 50 MG, 1X/DAY
     Route: 048

REACTIONS (2)
  - INTERSTITIAL LUNG DISEASE [None]
  - PNEUMOCYSTIS JIROVECI PNEUMONIA [None]
